FAERS Safety Report 14721293 (Version 6)
Quarter: 2018Q3

REPORT INFORMATION
  Report Type: Report from Study
  Country: None (occurrence: CA)
  Receive Date: 20180405
  Receipt Date: 20180911
  Transmission Date: 20181010
  Serious: Yes (Life-Threatening, Hospitalization, Other)
  Sender: FDA-Public Use
  Company Number: CA-ABBVIE-18K-028-2305626-00

PATIENT
  Age: 73 Year
  Sex: Male
  Weight: 61.29 kg

DRUGS (6)
  1. DUODOPA [Suspect]
     Active Substance: CARBIDOPA\LEVODOPA
     Indication: PARKINSON^S DISEASE
     Dosage: MD: 9 ML. CD: 3.5 ML/H. ED: 2ML
     Route: 050
     Dates: start: 20160926
  2. CONSTELLA [Concomitant]
     Active Substance: LINACLOTIDE
     Indication: CONSTIPATION
     Route: 048
     Dates: start: 2017
  3. QUETIAPINE. [Concomitant]
     Active Substance: QUETIAPINE
     Indication: SLEEP DISORDER THERAPY
     Dosage: AT BEDTIME
     Route: 048
     Dates: start: 2017
  4. SINEMET CR [Concomitant]
     Active Substance: CARBIDOPA\LEVODOPA
     Indication: PARKINSON^S DISEASE
     Dosage: 100/25 MG AT BEDTIME, 2 TABS QHS
     Route: 048
     Dates: start: 20160926
  5. RIVASTIGMINE. [Concomitant]
     Active Substance: RIVASTIGMINE
     Indication: MEMORY IMPAIRMENT
     Route: 048
     Dates: start: 20170315
  6. MYRBETRIQ [Concomitant]
     Active Substance: MIRABEGRON
     Indication: MICTURITION URGENCY
     Route: 048

REACTIONS (8)
  - Terminal state [Not Recovered/Not Resolved]
  - Irritability [Not Recovered/Not Resolved]
  - General physical health deterioration [Not Recovered/Not Resolved]
  - Speech disorder [Recovering/Resolving]
  - Non-Hodgkin^s lymphoma stage IV [Not Recovered/Not Resolved]
  - Intentional medical device removal by patient [Not Recovered/Not Resolved]
  - Dysphagia [Recovering/Resolving]
  - Mobility decreased [Recovering/Resolving]

NARRATIVE: CASE EVENT DATE: 2018
